FAERS Safety Report 17866086 (Version 1)
Quarter: 2020Q2

REPORT INFORMATION
  Report Type: Spontaneous
  Country: US (occurrence: US)
  Receive Date: 20200605
  Receipt Date: 20200605
  Transmission Date: 20200714
  Serious: Yes (Other)
  Sender: FDA-Public Use
  Company Number: None

PATIENT
  Age: 55 Year
  Sex: Male
  Weight: 100.2 kg

DRUGS (1)
  1. REMDESIVIR. [Suspect]
     Active Substance: REMDESIVIR
     Indication: CORONAVIRUS TEST POSITIVE
     Route: 042
     Dates: start: 20200523, end: 20200601

REACTIONS (2)
  - Renal impairment [None]
  - Renal function test abnormal [None]

NARRATIVE: CASE EVENT DATE: 20200530
